FAERS Safety Report 20095685 (Version 2)
Quarter: 2021Q4

REPORT INFORMATION
  Report Type: Spontaneous
  Country: RU (occurrence: None)
  Receive Date: 20211122
  Receipt Date: 20211213
  Transmission Date: 20220303
  Serious: Yes (Death, Other)
  Sender: FDA-Public Use
  Company Number: RU-ROCHE-2959650

PATIENT
  Sex: Female

DRUGS (1)
  1. RISDIPLAM [Suspect]
     Active Substance: RISDIPLAM
     Indication: Spinal muscular atrophy
     Dosage: 0.75 MG/ML. 60 MG PER VIAL.
     Route: 048
     Dates: start: 20201204

REACTIONS (3)
  - Cardiac failure acute [Fatal]
  - Disease progression [Unknown]
  - Asthenia [Unknown]
